FAERS Safety Report 7991492-X (Version None)
Quarter: 2011Q4

REPORT INFORMATION
  Report Type: 
  Country: None (occurrence: None)
  Receive Date: 20111219
  Receipt Date: 20111213
  Transmission Date: 20120403
  Serious: Yes (Death, Hospitalization)
  Sender: FDA-Public Use
  Company Number: US-BAYER-2011-049792

PATIENT
  Age: 31 Year
  Sex: Female
  Weight: 106 kg

DRUGS (1)
  1. YAZ [Suspect]
     Indication: CONTRACEPTION
     Dosage: UNK
     Dates: start: 20080801, end: 20090101

REACTIONS (6)
  - INJURY [None]
  - PULMONARY EMBOLISM [None]
  - CIRCULATORY COLLAPSE [None]
  - CHOLECYSTITIS ACUTE [None]
  - GALLBLADDER DISORDER [None]
  - PAIN [None]
